FAERS Safety Report 7405246-6 (Version None)
Quarter: 2011Q2

REPORT INFORMATION
  Report Type: 
  Country: None (occurrence: None)
  Receive Date: 20110411
  Receipt Date: 20110314
  Transmission Date: 20111010
  Serious: Yes (Hospitalization, Other)
  Sender: FDA-Public Use
  Company Number: US-BAYER-201034563NA

PATIENT
  Age: 26 Year
  Sex: Female

DRUGS (3)
  1. YAZ [Suspect]
     Indication: PRODUCT USED FOR UNKNOWN INDICATION
     Dosage: FREQUENCY: CONTINUOUS
     Route: 015
     Dates: start: 20090801, end: 20091201
  2. XANAX [Concomitant]
     Dosage: 0.25 MG, PRN
  3. PROZAC [Concomitant]
     Dosage: 20 MG, QD

REACTIONS (1)
  - PULMONARY EMBOLISM [None]
